FAERS Safety Report 6983526-6 (Version None)
Quarter: 2010Q3

REPORT INFORMATION
  Report Type: 
  Country: None (occurrence: None)
  Receive Date: 20100914
  Receipt Date: 20080828
  Transmission Date: 20110219
  Serious: No
  Sender: FDA-Public Use
  Company Number: US-WYE-H05825108

PATIENT
  Age: 57 Year
  Sex: Female
  Weight: 59.02 kg

DRUGS (3)
  1. ADVIL LIQUI-GELS [Suspect]
     Indication: PAIN
     Dosage: 2 GEL CAPLETS AS NEEDED
     Route: 048
     Dates: start: 20080601
  2. METFORMIN HCL [Concomitant]
  3. NASONEX [Concomitant]

REACTIONS (5)
  - DRUG HYPERSENSITIVITY [None]
  - DYSPNOEA [None]
  - NAUSEA [None]
  - PHARYNGEAL OEDEMA [None]
  - URTICARIA [None]
